FAERS Safety Report 7467384-1 (Version None)
Quarter: 2011Q2

REPORT INFORMATION
  Report Type: 
  Country: None (occurrence: None)
  Receive Date: 20110509
  Receipt Date: 20090504
  Transmission Date: 20111010
  Serious: Yes (Death, Other)
  Sender: FDA-Public Use
  Company Number: US-BAYER-200920873NA

PATIENT
  Age: 84 Year
  Sex: Male
  Weight: 91.156 kg

DRUGS (17)
  1. TERAZOSIN HCL [Concomitant]
     Dosage: 5 MG, QD
  2. ALBUMIN (HUMAN) [Concomitant]
     Dosage: UNK
     Route: 042
     Dates: start: 20070702, end: 20070702
  3. AMIODARONE [Concomitant]
     Dosage: UNK
     Dates: start: 20070702, end: 20070702
  4. TRASYLOL [Suspect]
     Dosage: 99 ML BOLUS
     Route: 040
     Dates: start: 20070702, end: 20070702
  5. TRASYLOL [Suspect]
     Dosage: 25 ML/HOUR INFUSION
     Route: 042
     Dates: start: 20070702, end: 20070702
  6. HEPARIN [Concomitant]
     Dosage: 10,000 UNITS
     Route: 042
     Dates: start: 20070702, end: 20070702
  7. INSULIN [Concomitant]
     Dosage: 19 UNITS FOLLOWED BY 19 UNITS FOLLOWED BY 15
     Route: 042
     Dates: start: 20070702, end: 20070702
  8. ZOCOR [Concomitant]
     Dosage: 80 MG, QD
     Route: 048
  9. HYDROCHLOROTHIAZIDE [Concomitant]
     Dosage: 25 MG, BID
     Route: 048
  10. HUMAN RED BLOOD CELLS [Concomitant]
     Dosage: 2 U, UNK
     Route: 042
     Dates: start: 20070702, end: 20070702
  11. TRASYLOL [Suspect]
     Indication: CORONARY ARTERY BYPASS
     Dosage: 1 ML, UNK, INITIAL TEST DOSE
     Route: 042
     Dates: start: 20070702, end: 20070702
  12. ACETYLSALICYLIC ACID SRT [Concomitant]
     Dosage: 81 MG, QD
     Route: 048
  13. PROTAMINE [Concomitant]
     Dosage: UNK
     Route: 042
     Dates: start: 20070702, end: 20070702
  14. FELODIPINE [Concomitant]
     Dosage: 20 MG, QD
     Route: 048
  15. LISINOPRIL [Concomitant]
     Dosage: 80 MG, QD
     Route: 048
  16. IMDUR [Concomitant]
     Route: 048
  17. MANNITOL [Concomitant]
     Dosage: UNK
     Route: 042
     Dates: start: 20070702, end: 20070702

REACTIONS (13)
  - EMOTIONAL DISTRESS [None]
  - RENAL IMPAIRMENT [None]
  - MULTI-ORGAN FAILURE [None]
  - STRESS [None]
  - DEATH [None]
  - RENAL FAILURE [None]
  - INJURY [None]
  - ANXIETY [None]
  - FEAR [None]
  - PAIN [None]
  - RENAL INJURY [None]
  - UNEVALUABLE EVENT [None]
  - ANHEDONIA [None]
